FAERS Safety Report 4813294-5 (Version None)
Quarter: 2005Q4

REPORT INFORMATION
  Report Type: 
  Country: None (occurrence: None)
  Receive Date: 20051028
  Receipt Date: 20050425
  Transmission Date: 20060501
  Serious: No
  Sender: FDA-Public Use
  Company Number: US-GLAXOSMITHKLINE-A0555583A

PATIENT
  Age: 54 Year
  Sex: Female

DRUGS (15)
  1. ADVAIR DISKUS 100/50 [Suspect]
     Indication: ASTHMA
     Dosage: 1PUFF TWICE PER DAY
     Route: 055
     Dates: start: 20040501, end: 20050425
  2. WELLBUTRIN XL [Concomitant]
  3. CLONAZEPAM [Concomitant]
  4. FLUPHENAZINE [Concomitant]
  5. LANOXIN [Concomitant]
  6. LORATADINE [Concomitant]
  7. MAXAIR [Concomitant]
  8. DIAZEPAM [Concomitant]
  9. LIPITOR [Concomitant]
  10. RANITIDINE [Concomitant]
  11. SINGULAIR [Concomitant]
  12. ACTOS [Concomitant]
  13. MIRALAX [Concomitant]
  14. DOCUSATE [Concomitant]
  15. COUMADIN [Concomitant]

REACTIONS (2)
  - DRUG INEFFECTIVE [None]
  - PHARMACEUTICAL PRODUCT COMPLAINT [None]
